FAERS Safety Report 6706912-8 (Version None)
Quarter: 2010Q2

REPORT INFORMATION
  Report Type: 
  Country: None (occurrence: None)
  Receive Date: 20100503
  Receipt Date: 20100423
  Transmission Date: 20101027
  Serious: Yes (Disabling, Other)
  Sender: FDA-Public Use
  Company Number: DE-PFIZER INC-2010012030

PATIENT
  Age: 60 Year
  Sex: Male
  Weight: 84 kg

DRUGS (3)
  1. SORTIS [Suspect]
     Indication: HYPERCHOLESTEROLAEMIA
     Dosage: UNK
     Route: 048
     Dates: start: 20100115, end: 20100101
  2. AMLODIPINE [Concomitant]
     Dosage: UNK
     Dates: start: 20091201
  3. ASPIRIN [Concomitant]

REACTIONS (3)
  - RETINAL DETACHMENT [None]
  - RETINAL OEDEMA [None]
  - VISUAL ACUITY REDUCED [None]
